FAERS Safety Report 17934540 (Version 1)
Quarter: 2020Q2

REPORT INFORMATION
  Report Type: Spontaneous
  Country: US (occurrence: US)
  Receive Date: 20200624
  Receipt Date: 20200624
  Transmission Date: 20200714
  Serious: No
  Sender: FDA-Public Use
  Company Number: US-GLENMARK PHARMACEUTICALS-2020GMK046688

PATIENT

DRUGS (1)
  1. ZOLMITRIPTAN. [Suspect]
     Active Substance: ZOLMITRIPTAN
     Indication: MIGRAINE
     Dosage: UNK, (3 OR 4 TIMES MORE OFTEN, OR INCREASE THE DOSAGE)
     Route: 065

REACTIONS (1)
  - Drug ineffective for unapproved indication [Unknown]
